FAERS Safety Report 4900511-6 (Version None)
Quarter: 2006Q1

REPORT INFORMATION
  Report Type: 
  Country: None (occurrence: None)
  Receive Date: 20060203
  Receipt Date: 20060130
  Transmission Date: 20060701
  Serious: Yes (Hospitalization)
  Sender: FDA-Public Use
  Company Number: US-MERCK-0601USA03619

PATIENT
  Age: 67 Year
  Sex: Male
  Weight: 87 kg

DRUGS (4)
  1. VIOXX [Suspect]
     Indication: POLYMYALGIA
     Route: 048
     Dates: start: 20020215, end: 20020222
  2. PLAVIX [Concomitant]
     Route: 065
  3. AVAPRO [Concomitant]
     Route: 065
  4. ASPIRIN [Concomitant]
     Route: 065

REACTIONS (7)
  - APPENDIX DISORDER [None]
  - ATRIAL FLUTTER [None]
  - BACK DISORDER [None]
  - CARDIAC DISORDER [None]
  - CARDIAC FAILURE CONGESTIVE [None]
  - MYOCARDIAL INFARCTION [None]
  - THROMBOSIS [None]
